FAERS Safety Report 5894704-1 (Version None)
Quarter: 2008Q3

REPORT INFORMATION
  Report Type: 
  Country: None (occurrence: None)
  Receive Date: 20080924
  Receipt Date: 20080512
  Transmission Date: 20090109
  Serious: No
  Sender: FDA-Public Use
  Company Number: US-ASTRAZENECA-2008UW09801

PATIENT
  Age: 24 Year
  Sex: Male

DRUGS (3)
  1. SEROQUEL [Suspect]
     Indication: BIPOLAR DISORDER
     Route: 048
  2. DEPAKOTE [Concomitant]
  3. LAMICTAL [Concomitant]

REACTIONS (2)
  - ABNORMAL DREAMS [None]
  - HANGOVER [None]
